FAERS Safety Report 11500039 (Version 1)
Quarter: 2015Q3

REPORT INFORMATION
  Report Type: Spontaneous
  Country: JP (occurrence: JP)
  Receive Date: 20150914
  Receipt Date: 20150914
  Transmission Date: 20151125
  Serious: Yes (Life-Threatening)
  Sender: FDA-Public Use
  Company Number: JP-ROCHE-1631985

PATIENT
  Age: 83 Year
  Sex: Female
  Weight: 43 kg

DRUGS (2)
  1. AVASTIN [Suspect]
     Active Substance: BEVACIZUMAB
     Indication: COLON CANCER
     Dosage: LAST DOSE ON 01/APR/2015.
     Route: 041
     Dates: start: 20150107
  2. XELODA [Suspect]
     Active Substance: CAPECITABINE
     Indication: COLON CANCER
     Dosage: LAST DOSE ON 15/APR/2015.
     Route: 048
     Dates: start: 20150107

REACTIONS (2)
  - Duodenal ulcer perforation [Recovered/Resolved]
  - Peritonitis [Recovered/Resolved]

NARRATIVE: CASE EVENT DATE: 20150508
